FAERS Safety Report 7851151-0 (Version None)
Quarter: 2011Q4

REPORT INFORMATION
  Report Type: 
  Country: None (occurrence: None)
  Receive Date: 20111026
  Receipt Date: 20111025
  Transmission Date: 20120403
  Serious: Yes (Life-Threatening, Hospitalization)
  Sender: FDA-Public Use
  Company Number: JP-B.I. PHARMACEUTICALS,INC./RIDGEFIELD-2011-BP-24548NB

PATIENT
  Age: 85 Year
  Sex: Male
  Weight: 62.7 kg

DRUGS (4)
  1. PRADAXA [Suspect]
     Dosage: 150 MG
     Route: 048
     Dates: start: 20110905
  2. WARFARIN SODIUM [Suspect]
     Indication: ATRIAL FIBRILLATION
     Route: 048
     Dates: start: 20110421, end: 20110519
  3. ISOSORBIDE DINITRATE [Suspect]
     Route: 065
  4. PRADAXA [Suspect]
     Indication: ATRIAL FIBRILLATION
     Dosage: 220 MG
     Route: 048
     Dates: start: 20110519

REACTIONS (4)
  - LARGE INTESTINAL HAEMORRHAGE [None]
  - LARGE INTESTINE CARCINOMA [None]
  - MELAENA [None]
  - RECTAL HAEMORRHAGE [None]
